FAERS Safety Report 20017309 (Version 2)
Quarter: 2021Q4

REPORT INFORMATION
  Report Type: Spontaneous
  Country: BR (occurrence: BR)
  Receive Date: 20211030
  Receipt Date: 20211112
  Transmission Date: 20220303
  Serious: Yes (Other)
  Sender: FDA-Public Use
  Company Number: BR-NOVARTISPH-NVSC2021BR244552

PATIENT
  Sex: Male
  Weight: 92 kg

DRUGS (1)
  1. TEGRETOL [Suspect]
     Active Substance: CARBAMAZEPINE
     Indication: Facial pain
     Dosage: 800 MG, QD
     Route: 048
     Dates: start: 2009

REACTIONS (9)
  - Interstitial lung disease [Unknown]
  - Dyspnoea exertional [Not Recovered/Not Resolved]
  - Pulmonary fibrosis [Unknown]
  - Seborrhoeic dermatitis [Unknown]
  - Rash [Not Recovered/Not Resolved]
  - Hyperaemia [Unknown]
  - Jaw disorder [Unknown]
  - Condition aggravated [Unknown]
  - Oxygen saturation decreased [Unknown]

NARRATIVE: CASE EVENT DATE: 20200101
